FAERS Safety Report 14654274 (Version 1)
Quarter: 2018Q1

REPORT INFORMATION
  Report Type: Spontaneous
  Country: IT (occurrence: IT)
  Receive Date: 20180319
  Receipt Date: 20180319
  Transmission Date: 20180509
  Serious: Yes (Hospitalization)
  Sender: FDA-Public Use
  Company Number: PHHY2017IT186093

PATIENT
  Age: 2 Year
  Sex: Male

DRUGS (14)
  1. HYDROXYZINE [Suspect]
     Active Substance: HYDROXYZINE HYDROCHLORIDE
     Dosage: 2 MG/KG ENTERAL ROUTE (DAY 2 AND 3)
     Route: 048
  2. PROPOFOL. [Suspect]
     Active Substance: PROPOFOL
     Dosage: 0.93 MG/KG, QH (24 HR) (DAY 2)
     Route: 042
  3. PROPOFOL. [Suspect]
     Active Substance: PROPOFOL
     Dosage: 4 MG/KG, QH (24 HR) (DAY 3)
     Route: 042
  4. FENTANYL. [Suspect]
     Active Substance: FENTANYL
     Indication: MOVEMENT DISORDER
     Dosage: 0.65 UG/KG, QH (16 HR) (DAY 4)
     Route: 042
  5. FENTANYL. [Suspect]
     Active Substance: FENTANYL
     Indication: AGITATION
     Dosage: 0.95 UG/KG, QH (24 HR) (DAY 3)
     Route: 042
  6. PROPOFOL. [Suspect]
     Active Substance: PROPOFOL
     Dosage: 5.38 MG/KG, QH (14 HR) (DAY 4)
     Route: 042
  7. FENTANYL. [Suspect]
     Active Substance: FENTANYL
     Dosage: 0.95 UG/KG PER HOUR (DAY3)
     Route: 042
  8. HYDROXYZINE [Suspect]
     Active Substance: HYDROXYZINE HYDROCHLORIDE
     Indication: DRUG WITHDRAWAL MAINTENANCE THERAPY
     Dosage: 1 MG/KG ENTERAL ROUTE (DAY 4)
     Route: 048
  9. PROPOFOL. [Suspect]
     Active Substance: PROPOFOL
     Indication: SEDATION
     Dosage: 8 MG/KG, QH (4 HR) (DAY 1)
     Route: 042
  10. MIDAZOLAM [Suspect]
     Active Substance: MIDAZOLAM HYDROCHLORIDE
     Indication: SEDATION
     Dosage: 0.03 MG/KG, QH (10 HR) (DAY 1)
     Route: 042
  11. MIDAZOLAM [Suspect]
     Active Substance: MIDAZOLAM HYDROCHLORIDE
     Dosage: 0.17 MG/KG, QH (16 HR) (DAY 3)
     Route: 042
  12. MIDAZOLAM [Suspect]
     Active Substance: MIDAZOLAM HYDROCHLORIDE
     Dosage: 0.16 MG/KG, QH (16 HR) (DAY 3)
     Route: 042
  13. FENTANYL. [Suspect]
     Active Substance: FENTANYL
     Dosage: 0.65 UG/KG PER HOUR (DAY 4)
     Route: 042
  14. MIDAZOLAM [Suspect]
     Active Substance: MIDAZOLAM HYDROCHLORIDE
     Dosage: 0.16 MG/KG, QH (24 HR) (DAY 2)
     Route: 042

REACTIONS (7)
  - Mutism [Recovered/Resolved]
  - Cogwheel rigidity [Recovered/Resolved]
  - Oculogyric crisis [Recovered/Resolved]
  - Dyskinesia [Recovered/Resolved]
  - Postural tremor [Recovered/Resolved]
  - Drug withdrawal syndrome [Recovered/Resolved]
  - Akinesia [Recovered/Resolved]
